FAERS Safety Report 20049157 (Version 3)
Quarter: 2021Q4

REPORT INFORMATION
  Report Type: Spontaneous
  Country: PT (occurrence: PT)
  Receive Date: 20211109
  Receipt Date: 20211223
  Transmission Date: 20220303
  Serious: Yes (Life-Threatening, Hospitalization, Other)
  Sender: FDA-Public Use
  Company Number: PT-MYLANLABS-2021M1079021

PATIENT
  Age: 80 Year
  Sex: Male

DRUGS (7)
  1. LINEZOLID [Interacting]
     Active Substance: LINEZOLID
     Indication: Localised infection
     Dosage: UNK
     Route: 065
  2. LINEZOLID [Interacting]
     Active Substance: LINEZOLID
     Indication: Staphylococcal infection
  3. LINEZOLID [Interacting]
     Active Substance: LINEZOLID
     Indication: Enterococcal infection
  4. LINEZOLID [Interacting]
     Active Substance: LINEZOLID
     Indication: Antibiotic therapy
  5. VENLAFAXINE [Interacting]
     Active Substance: VENLAFAXINE HYDROCHLORIDE
     Indication: Chronic obstructive pulmonary disease
     Dosage: UNK
     Route: 065
  6. VENLAFAXINE [Interacting]
     Active Substance: VENLAFAXINE HYDROCHLORIDE
     Indication: Hip arthroplasty
  7. VENLAFAXINE [Interacting]
     Active Substance: VENLAFAXINE HYDROCHLORIDE
     Indication: Depression

REACTIONS (5)
  - Lactic acidosis [Recovering/Resolving]
  - Serotonin syndrome [Recovering/Resolving]
  - Potentiating drug interaction [Recovered/Resolved]
  - Hyperlactacidaemia [Recovered/Resolved]
  - Toxicity to various agents [Recovered/Resolved]
